FAERS Safety Report 20391172 (Version 1)
Quarter: 2022Q1

REPORT INFORMATION
  Report Type: Spontaneous
  Country: US (occurrence: US)
  Receive Date: 20220128
  Receipt Date: 20220128
  Transmission Date: 20220423
  Serious: No
  Sender: FDA-Public Use
  Company Number: US-BIOVITRUM-2022US00833

PATIENT
  Sex: Male
  Weight: 12 kg

DRUGS (5)
  1. SYNAGIS [Suspect]
     Active Substance: PALIVIZUMAB
     Indication: Premature baby
     Route: 030
  2. SYNAGIS [Suspect]
     Active Substance: PALIVIZUMAB
     Indication: Low birth weight baby
  3. DIETARY SUPPLEMENT [Concomitant]
     Active Substance: DIETARY SUPPLEMENT
     Dosage: LITTLE REMEDIES GRIPE WATER
  4. POLYVISOL WITH IRON [Concomitant]
  5. CULTURELLE BABY GROW THRIVE [Concomitant]

REACTIONS (2)
  - Illness [Unknown]
  - Product dose omission issue [Unknown]
